FAERS Safety Report 7146402-4 (Version None)
Quarter: 2010Q4

REPORT INFORMATION
  Report Type: 
  Country: None (occurrence: None)
  Receive Date: 20101208
  Receipt Date: 20100512
  Transmission Date: 20110411
  Serious: No
  Sender: FDA-Public Use
  Company Number: US-BRISTOL-MYERS SQUIBB COMPANY-15103518

PATIENT
  Age: 49 Year
  Sex: Female
  Weight: 63 kg

DRUGS (2)
  1. PRAVACHOL [Suspect]
     Indication: BLOOD CHOLESTEROL INCREASED
     Dates: start: 20100101, end: 20100101
  2. NEXIUM [Concomitant]

REACTIONS (1)
  - TENDONITIS [None]
